FAERS Safety Report 17415620 (Version 1)
Quarter: 2020Q1

REPORT INFORMATION
  Report Type: Spontaneous
  Country: BE (occurrence: BE)
  Receive Date: 20200213
  Receipt Date: 20200213
  Transmission Date: 20200409
  Serious: Yes (Hospitalization, Other)
  Sender: FDA-Public Use
  Company Number: BE-SHIRE-BE202004958

PATIENT

DRUGS (2)
  1. 476 (MESALAZINE/MESALAMINE) [Suspect]
     Active Substance: MESALAMINE
     Indication: COLITIS ULCERATIVE
     Dosage: 3 G 1 TIME DAILY
     Route: 064
  2. INFLIXIMAB [Suspect]
     Active Substance: INFLIXIMAB
     Indication: COLITIS ULCERATIVE
     Dosage: UNK
     Route: 064

REACTIONS (8)
  - Respiratory tract infection [Recovered/Resolved]
  - Otitis media acute [Recovered/Resolved]
  - Dermatitis diaper [Recovered/Resolved]
  - Foetal exposure during pregnancy [Recovered/Resolved]
  - Pharyngitis [Recovered/Resolved]
  - Oral candidiasis [Recovered/Resolved]
  - Tonsillitis [Recovered/Resolved]
  - Autoimmune neutropenia [Recovered/Resolved]
